FAERS Safety Report 9465682 (Version 1)
Quarter: 2013Q3

REPORT INFORMATION
  Report Type: Report from Study
  Country: VE (occurrence: VE)
  Receive Date: 20130820
  Receipt Date: 20130820
  Transmission Date: 20140515
  Serious: Yes (Hospitalization, Other)
  Sender: FDA-Public Use
  Company Number: PHHY2013VE088756

PATIENT
  Age: 54 Year
  Sex: Male

DRUGS (4)
  1. SANDOSTATIN LAR [Suspect]
     Indication: NEOPLASM
     Dosage: 20 MG, MONTHLY
  2. SANDOSTATIN LAR [Suspect]
     Dosage: 20 MG, MONTHLY
  3. NEURONTIN [Concomitant]
     Dosage: 400 MG, UNK
  4. PENTASA [Concomitant]
     Dosage: UNK UKN, UNK

REACTIONS (3)
  - Platelet count decreased [Not Recovered/Not Resolved]
  - Abscess [Not Recovered/Not Resolved]
  - Haematochezia [Not Recovered/Not Resolved]
